FAERS Safety Report 10360503 (Version 1)
Quarter: 2014Q3

REPORT INFORMATION
  Report Type: Spontaneous
  Country: US (occurrence: None)
  Receive Date: 20140801
  Receipt Date: 20140801
  Transmission Date: 20150326
  Serious: Yes (Other)
  Sender: FDA-Public Use
  Company Number: None

PATIENT
  Age: 66 Year
  Sex: Male

DRUGS (1)
  1. STELARA [Suspect]
     Active Substance: USTEKINUMAB
     Indication: PSORIASIS
     Dosage: Q 12 WEEKS.
     Route: 058
     Dates: start: 20140115

REACTIONS (7)
  - Dry mouth [None]
  - Oral pain [None]
  - Chills [None]
  - Blood glucose increased [None]
  - Hyperhidrosis [None]
  - Mouth swelling [None]
  - Blood pressure increased [None]

NARRATIVE: CASE EVENT DATE: 20140728
